FAERS Safety Report 14665112 (Version 1)
Quarter: 2018Q1

REPORT INFORMATION
  Report Type: Spontaneous
  Country: US (occurrence: US)
  Receive Date: 20180320
  Receipt Date: 20180320
  Transmission Date: 20180509
  Serious: Yes (Death)
  Sender: FDA-Public Use
  Company Number: None

PATIENT
  Sex: Female

DRUGS (7)
  1. AFINITOR [Suspect]
     Active Substance: EVEROLIMUS
     Indication: CARCINOID TUMOUR
     Route: 048
     Dates: start: 20180223
  2. MUPIROCIN. [Concomitant]
     Active Substance: MUPIROCIN
  3. MORPHINE [Concomitant]
     Active Substance: MORPHINE
  4. CELECOXIB. [Concomitant]
     Active Substance: CELECOXIB
  5. XARELTO [Concomitant]
     Active Substance: RIVAROXABAN
  6. EXEMESTANE. [Concomitant]
     Active Substance: EXEMESTANE
  7. CLOBETASOL [Concomitant]
     Active Substance: CLOBETASOL

REACTIONS (1)
  - Death [None]
